FAERS Safety Report 8434662-9 (Version None)
Quarter: 2012Q2

REPORT INFORMATION
  Report Type: 
  Country: None (occurrence: None)
  Receive Date: 20120323
  Receipt Date: 20111214
  Transmission Date: 20120825
  Serious: Yes (Other)
  Sender: FDA-Public Use
  Company Number: 163-21880-11071059

PATIENT
  Age: 75 Year
  Sex: Female
  Weight: 53.8 kg

DRUGS (6)
  1. REVLIMID [Suspect]
     Indication: NON-HODGKIN'S LYMPHOMA
     Dosage: SEE IMAGE
     Route: 048
     Dates: start: 20090501
  2. REVLIMID [Suspect]
     Indication: NON-HODGKIN'S LYMPHOMA
     Dosage: SEE IMAGE
     Route: 048
     Dates: start: 20100506
  3. REVLIMID [Suspect]
     Indication: NON-HODGKIN'S LYMPHOMA
     Dosage: SEE IMAGE
     Route: 048
     Dates: start: 20110201
  4. REVLIMID [Suspect]
     Indication: NON-HODGKIN'S LYMPHOMA
     Dosage: SEE IMAGE
     Route: 048
     Dates: start: 20081201
  5. GABAPENTIN [Concomitant]
  6. REVLIMID [Suspect]

REACTIONS (7)
  - NEUROPATHY PERIPHERAL [None]
  - BALANCE DISORDER [None]
  - HYPOAESTHESIA [None]
  - PRURITUS [None]
  - JOINT SWELLING [None]
  - DIARRHOEA [None]
  - MUSCLE SPASMS [None]
